FAERS Safety Report 6866952-5 (Version None)
Quarter: 2010Q3

REPORT INFORMATION
  Report Type: 
  Country: None (occurrence: None)
  Receive Date: 20100722
  Receipt Date: 20100712
  Transmission Date: 20110219
  Serious: Yes (Hospitalization)
  Sender: FDA-Public Use
  Company Number: JP-ROCHE-648413

PATIENT
  Sex: Female

DRUGS (20)
  1. TOCILIZUMAB [Suspect]
     Indication: RHEUMATOID ARTHRITIS
     Route: 041
     Dates: start: 20090601, end: 20090601
  2. TOCILIZUMAB [Suspect]
     Route: 041
     Dates: start: 20090629, end: 20090629
  3. TOCILIZUMAB [Suspect]
     Route: 041
     Dates: start: 20090803, end: 20090803
  4. TOCILIZUMAB [Suspect]
     Route: 041
     Dates: start: 20090831, end: 20090831
  5. TOCILIZUMAB [Suspect]
     Route: 041
     Dates: start: 20090930, end: 20090930
  6. TOCILIZUMAB [Suspect]
     Route: 041
     Dates: start: 20091030, end: 20091030
  7. TOCILIZUMAB [Suspect]
     Route: 041
     Dates: start: 20091217, end: 20091217
  8. TOCILIZUMAB [Suspect]
     Route: 041
     Dates: start: 20100114
  9. PREDNISOLONE [Suspect]
     Indication: RHEUMATOID ARTHRITIS
     Route: 048
     Dates: end: 20090807
  10. PREDNISOLONE [Suspect]
     Route: 048
     Dates: start: 20090808
  11. BREDININ [Concomitant]
     Route: 048
     Dates: end: 20091102
  12. IMURAN [Concomitant]
     Route: 048
     Dates: start: 20091103
  13. ISCOTIN [Concomitant]
     Dosage: ORM: PERORAL AGENT
     Route: 048
  14. MUCOSTA [Concomitant]
     Dosage: FORM: PERORAL AGENT
     Route: 048
  15. GASTER D [Concomitant]
     Route: 048
  16. PANALDINE [Concomitant]
     Dosage: ORM: PERORAL AGENT
     Route: 048
  17. CALSLOT [Concomitant]
     Route: 048
  18. ONEALFA [Concomitant]
     Route: 048
  19. ACTONEL [Concomitant]
     Route: 048
  20. AMOBAN [Concomitant]
     Dosage: FORM: PERORAL AGENT
     Route: 048

REACTIONS (2)
  - SPINAL COMPRESSION FRACTURE [None]
  - VOLVULUS [None]
